FAERS Safety Report 7514952-4 (Version None)
Quarter: 2011Q2

REPORT INFORMATION
  Report Type: 
  Country: None (occurrence: None)
  Receive Date: 20110601
  Receipt Date: 20110527
  Transmission Date: 20111010
  Serious: Yes (Hospitalization)
  Sender: FDA-Public Use
  Company Number: JP-EISAI INC-E2020-08913-SPO-JP

PATIENT
  Age: 73 Year
  Sex: Female

DRUGS (2)
  1. ARICEPT [Suspect]
     Route: 048
     Dates: start: 20110301
  2. ARICEPT [Suspect]
     Indication: DEMENTIA ALZHEIMER'S TYPE
     Dosage: UNKNOWN
     Route: 048
     Dates: end: 20110301

REACTIONS (2)
  - ALTERED STATE OF CONSCIOUSNESS [None]
  - BRADYCARDIA [None]
